FAERS Safety Report 8782076 (Version 1)
Quarter: 2012Q4

REPORT INFORMATION
  Report Type: Report from Study
  Country: US (occurrence: US)
  Receive Date: 20120913
  Receipt Date: 20120913
  Transmission Date: 20130627
  Serious: No
  Sender: FDA-Public Use
  Company Number: US-VERTEX PHARMACEUTICAL INC.-AE-2012-008697

PATIENT

DRUGS (3)
  1. INCIVEK [Suspect]
     Indication: HEPATITIS C
     Route: 048
  2. RIBAPAK [Concomitant]
     Indication: HEPATITIS C
  3. PEG-INTRON [Concomitant]
     Indication: HEPATITIS C

REACTIONS (5)
  - Insomnia [Unknown]
  - Constipation [Unknown]
  - Pruritus [Unknown]
  - Vomiting [Unknown]
  - Nausea [Unknown]
